FAERS Safety Report 17890148 (Version 4)
Quarter: 2020Q3

REPORT INFORMATION
  Report Type: Spontaneous
  Country: US (occurrence: US)
  Receive Date: 20200612
  Receipt Date: 20200824
  Transmission Date: 20201103
  Serious: Yes (Hospitalization)
  Sender: FDA-Public Use
  Company Number: US-ASTRAZENECA-2020SE73476

PATIENT
  Age: 55 Year
  Sex: Female
  Weight: 61.2 kg

DRUGS (1)
  1. BYETTA [Suspect]
     Active Substance: EXENATIDE
     Indication: TYPE 2 DIABETES MELLITUS
     Route: 058
     Dates: start: 2010

REACTIONS (6)
  - Myocardial infarction [Recovering/Resolving]
  - Neoplasm malignant [Recovering/Resolving]
  - Product dose omission issue [Unknown]
  - Intentional device misuse [Unknown]
  - Intercepted product administration error [Unknown]
  - Drug delivery system issue [Unknown]

NARRATIVE: CASE EVENT DATE: 2010
